FAERS Safety Report 11685956 (Version 1)
Quarter: 2015Q4

REPORT INFORMATION
  Report Type: Report from Study
  Country: US (occurrence: US)
  Receive Date: 20151030
  Receipt Date: 20151030
  Transmission Date: 20160304
  Serious: Yes (Hospitalization)
  Sender: FDA-Public Use
  Company Number: US-BIOGENIDEC-2015BI144801

PATIENT
  Age: 46 Year
  Sex: Female

DRUGS (10)
  1. VITAMIN D HIGH POTENCY [Concomitant]
  2. LASIX [Concomitant]
     Active Substance: FUROSEMIDE
  3. TECFIDERA [Suspect]
     Active Substance: DIMETHYL FUMARATE
     Indication: MULTIPLE SCLEROSIS
     Route: 048
  4. ZYRTEC [Concomitant]
     Active Substance: CETIRIZINE HYDROCHLORIDE
  5. TECFIDERA [Suspect]
     Active Substance: DIMETHYL FUMARATE
     Indication: MULTIPLE SCLEROSIS
     Route: 048
     Dates: start: 201407
  6. BRILINTA [Concomitant]
     Active Substance: TICAGRELOR
  7. LISINOPRIL PANTOPRAZOLE SODIUM [Concomitant]
  8. PRAVASTATIN SODIUM. [Concomitant]
     Active Substance: PRAVASTATIN SODIUM
  9. DIALYVITE OMEGA-3 CONCENT [Concomitant]
  10. CALCIUM 1200 + D3 [Concomitant]

REACTIONS (1)
  - Peripheral artery bypass [Unknown]
